FAERS Safety Report 14150217 (Version 2)
Quarter: 2017Q4

REPORT INFORMATION
  Report Type: Spontaneous
  Country: US (occurrence: US)
  Receive Date: 20171101
  Receipt Date: 20171120
  Transmission Date: 20180321
  Serious: Yes (Death, Life-Threatening, Hospitalization, Other)
  Sender: FDA-Public Use
  Company Number: US-SEPTODONT-201704339

PATIENT
  Sex: Male

DRUGS (7)
  1. MARCAINE [Suspect]
     Active Substance: BUPIVACAINE HYDROCHLORIDE
     Indication: PRODUCT USED FOR UNKNOWN INDICATION
     Dosage: 1 CARPULE ON LL; SECOND INJECTION (DOSAGE NOT SPECIFIED) FOR THE RIGHT SIDE
     Route: 004
     Dates: start: 201706, end: 201706
  2. XYLOCAINE [Suspect]
     Active Substance: LIDOCAINE HYDROCHLORIDE
     Indication: LOCAL ANAESTHESIA
     Dosage: TOTAL OF 4 INJECTIONS (DOSE OF EACH INJECTION NOT SPECIFIED)
     Dates: start: 201706, end: 201706
  3. ZOFRAN [Concomitant]
     Active Substance: ONDANSETRON HYDROCHLORIDE
     Route: 042
     Dates: start: 201706, end: 201706
  4. VERSED [Concomitant]
     Active Substance: MIDAZOLAM HYDROCHLORIDE
  5. FENTANYL. [Concomitant]
     Active Substance: FENTANYL
     Indication: DENTAL OPERATION
     Route: 042
     Dates: start: 201706, end: 201706
  6. KETAMINE [Concomitant]
     Active Substance: KETAMINE
     Route: 042
     Dates: start: 201706, end: 201706
  7. PROPOFOL. [Concomitant]
     Active Substance: PROPOFOL
     Dates: start: 201706, end: 201706

REACTIONS (9)
  - Cardiac arrest [Fatal]
  - Sinus tachycardia [Recovered/Resolved with Sequelae]
  - Heart rate increased [Recovered/Resolved with Sequelae]
  - PO2 decreased [Not Recovered/Not Resolved]
  - Brain injury [Fatal]
  - Heart rate decreased [Recovered/Resolved with Sequelae]
  - Blood pressure inadequately controlled [Fatal]
  - PO2 abnormal [Unknown]
  - Pulse absent [Recovered/Resolved with Sequelae]

NARRATIVE: CASE EVENT DATE: 201706
